FAERS Safety Report 22751726 (Version 2)
Quarter: 2023Q4

REPORT INFORMATION
  Report Type: Spontaneous
  Country: HR (occurrence: HR)
  Receive Date: 20230726
  Receipt Date: 20231109
  Transmission Date: 20240110
  Serious: Yes (Death, Other)
  Sender: FDA-Public Use
  Company Number: HR-BRISTOL-MYERS SQUIBB COMPANY-2023-104280

PATIENT
  Sex: Male
  Weight: 150 kg

DRUGS (3)
  1. OPDIVO [Suspect]
     Active Substance: NIVOLUMAB
     Indication: Metastatic malignant melanoma
     Dosage: 1ST CYCLE: 1 GRAM PER KILOGRAM (G/KG)
     Route: 042
     Dates: start: 202305
  2. OPDIVO [Suspect]
     Active Substance: NIVOLUMAB
     Dosage: 2ND CYCLE: 1 GRAM PER KILOGRAM (G/KG)
     Route: 042
  3. YERVOY [Suspect]
     Active Substance: IPILIMUMAB
     Indication: Metastatic malignant melanoma
     Dosage: 1ST CYCLE
     Route: 042
     Dates: start: 202305

REACTIONS (1)
  - Death [Fatal]

NARRATIVE: CASE EVENT DATE: 20230101
